FAERS Safety Report 8381430-2 (Version None)
Quarter: 2012Q2

REPORT INFORMATION
  Report Type: 
  Country: None (occurrence: None)
  Receive Date: 20120523
  Receipt Date: 20120510
  Transmission Date: 20120825
  Serious: Yes (Death)
  Sender: FDA-Public Use
  Company Number: US-ROCHE-1067751

PATIENT
  Sex: Male
  Weight: 77.6 kg

DRUGS (24)
  1. OXYCODONE HCL [Concomitant]
  2. MUCOMYST [Concomitant]
  3. FLOMAX [Concomitant]
  4. BACTRIM [Concomitant]
     Dates: start: 20120206
  5. LEVOTHYROXINE SODIUM [Concomitant]
  6. MORPHINE [Concomitant]
  7. EPOGEN [Concomitant]
  8. XOPENEX [Concomitant]
  9. PRAVACHOL [Concomitant]
  10. MABTHERA [Suspect]
     Indication: HAIRY CELL LEUKAEMIA
     Dosage: 10 MG/ML
     Route: 042
     Dates: start: 20120209, end: 20120404
  11. BACTRIM [Concomitant]
  12. DIFLUCAN [Concomitant]
  13. BENDAMUSTINE HYDROCHLORIDE [Suspect]
     Indication: HAIRY CELL LEUKAEMIA
     Route: 042
     Dates: start: 20120209, end: 20120405
  14. TAMSULOSIN HCL [Concomitant]
  15. CIPROFLOXACIN HCL [Concomitant]
  16. ATIVAN [Concomitant]
  17. SYNTHROID [Concomitant]
  18. FLAGYL [Concomitant]
  19. ATROVENT [Concomitant]
  20. PRIMAX [Concomitant]
  21. VALACYCLOVIR HYDROCHLORIDE [Concomitant]
     Dates: start: 20120208
  22. NEUPOGEN [Concomitant]
  23. RITALIN [Concomitant]
  24. CELEXA [Concomitant]

REACTIONS (3)
  - SEPSIS [None]
  - PNEUMONIA [None]
  - NEUTROPENIA [None]
